FAERS Safety Report 24028451 (Version 2)
Quarter: 2024Q4

REPORT INFORMATION
  Report Type: Spontaneous
  Country: US (occurrence: US)
  Receive Date: 20240628
  Receipt Date: 20241230
  Transmission Date: 20250115
  Serious: No
  Sender: LEO PHARM
  Company Number: US-LEO Pharma-371543

PATIENT
  Age: 64 Year
  Sex: Male

DRUGS (1)
  1. ADBRY [Suspect]
     Active Substance: TRALOKINUMAB-LDRM
     Indication: Dermatitis atopic

REACTIONS (4)
  - Drug ineffective [Unknown]
  - Injection site pain [Recovered/Resolved]
  - Eye irritation [Unknown]
  - Injection site pain [Unknown]
